FAERS Safety Report 5327265-6 (Version None)
Quarter: 2007Q2

REPORT INFORMATION
  Report Type: 
  Country: None (occurrence: None)
  Receive Date: 20070517
  Receipt Date: 20070510
  Transmission Date: 20071010
  Serious: Yes (Hospitalization)
  Sender: FDA-Public Use
  Company Number: JP-ROCHE-496944

PATIENT
  Age: 78 Year
  Sex: Male

DRUGS (8)
  1. KYTRIL [Suspect]
     Indication: PROPHYLAXIS OF NAUSEA AND VOMITING
     Route: 041
     Dates: start: 20070227, end: 20070227
  2. BEZATOL SR [Suspect]
     Indication: HYPERLIPIDAEMIA
     Route: 048
     Dates: end: 20070307
  3. CARBOPLATIN [Concomitant]
     Route: 041
     Dates: start: 20070227, end: 20070227
  4. ETOPOSIDE [Concomitant]
     Route: 048
     Dates: start: 20070227, end: 20070301
  5. AMLODIN [Concomitant]
     Indication: HYPERTENSION
     Route: 048
  6. DIOVAN [Concomitant]
     Indication: HYPERTENSION
     Route: 048
  7. ASPIRIN [Concomitant]
     Indication: ATRIAL FIBRILLATION
     Route: 048
  8. TENORMIN [Concomitant]
     Indication: HYPERTENSION
     Route: 048

REACTIONS (1)
  - RHABDOMYOLYSIS [None]
